FAERS Safety Report 7772595-1 (Version None)
Quarter: 2011Q3

REPORT INFORMATION
  Report Type: 
  Country: None (occurrence: None)
  Receive Date: 20110922
  Receipt Date: 20110517
  Transmission Date: 20111222
  Serious: No
  Sender: FDA-Public Use
  Company Number: US-ASTRAZENECA-2011SE30114

PATIENT
  Age: 49 Year
  Sex: Female
  Weight: 135.2 kg

DRUGS (5)
  1. MOBIC [Concomitant]
  2. SEROQUEL XR [Suspect]
     Indication: SLEEP DISORDER
     Route: 048
     Dates: start: 20100801
  3. SEROQUEL XR [Suspect]
     Route: 048
  4. CYMBALTA [Concomitant]
  5. MEDICATION FOR HYPERTENSION [Concomitant]

REACTIONS (6)
  - BONE PAIN [None]
  - HALLUCINATION, VISUAL [None]
  - INSOMNIA RELATED TO ANOTHER MENTAL CONDITION [None]
  - MUSCULOSKELETAL STIFFNESS [None]
  - BACK PAIN [None]
  - DRUG PRESCRIBING ERROR [None]
